FAERS Safety Report 7395484-3 (Version None)
Quarter: 2011Q2

REPORT INFORMATION
  Report Type: 
  Country: None (occurrence: None)
  Receive Date: 20110405
  Receipt Date: 20110328
  Transmission Date: 20111010
  Serious: Yes (Other)
  Sender: FDA-Public Use
  Company Number: US-PFIZER INC-2011069430

PATIENT
  Age: 78 Year
  Sex: Female

DRUGS (2)
  1. XALATAN [Suspect]
     Indication: GLAUCOMA
     Dosage: ONE DROP EACH EYE, ONCE A DAY
     Route: 047
     Dates: end: 20110101
  2. LATANOPROST [Suspect]
     Indication: GLAUCOMA
     Dosage: ONE DROP EACH EYE, ONCE DAILY
     Route: 047
     Dates: start: 20110301

REACTIONS (4)
  - HYPOACUSIS [None]
  - EYE SWELLING [None]
  - EYE DISORDER [None]
  - DRY EYE [None]
